FAERS Safety Report 18513112 (Version 1)
Quarter: 2020Q4

REPORT INFORMATION
  Report Type: Spontaneous
  Country: US (occurrence: US)
  Receive Date: 20201117
  Receipt Date: 20201117
  Transmission Date: 20210114
  Serious: No
  Sender: FDA-Public Use
  Company Number: US-TAKEDA-2020TUS049384

PATIENT
  Sex: Male
  Weight: 80 kg

DRUGS (4)
  1. ICLUSIG [Suspect]
     Active Substance: PONATINIB
     Indication: LEUKAEMIA
     Dosage: 45 MILLIGRAM, QD
     Route: 065
     Dates: start: 20200818
  2. CARVEDILOL. [Concomitant]
     Active Substance: CARVEDILOL
     Indication: HYPERTENSION
     Dosage: UNK
     Route: 065
  3. ICLUSIG [Suspect]
     Active Substance: PONATINIB
     Dosage: 30 MILLIGRAM, QD
     Route: 065
  4. ICLUSIG [Suspect]
     Active Substance: PONATINIB
     Dosage: 15 MILLIGRAM, QD
     Route: 065
     Dates: end: 20201109

REACTIONS (3)
  - Gait inability [Not Recovered/Not Resolved]
  - Neuralgia [Not Recovered/Not Resolved]
  - Asthenia [Not Recovered/Not Resolved]
